FAERS Safety Report 14242934 (Version 1)
Quarter: 2017Q4

REPORT INFORMATION
  Report Type: Report from Study
  Country: US (occurrence: US)
  Receive Date: 20171201
  Receipt Date: 20171201
  Transmission Date: 20180321
  Serious: Yes (Hospitalization, Other)
  Sender: FDA-Public Use
  Company Number: US-JNJFOC-20171132841

PATIENT

DRUGS (1)
  1. REMICADE [Suspect]
     Active Substance: INFLIXIMAB
     Indication: CROHN^S DISEASE
     Route: 042

REACTIONS (11)
  - Malabsorption [Unknown]
  - Gingival discolouration [Unknown]
  - Gingival pain [Unknown]
  - General physical health deterioration [Unknown]
  - Denture wearer [Unknown]
  - Gingival disorder [Not Recovered/Not Resolved]
  - Small intestinal resection [Unknown]
  - Vitamin B12 deficiency [Unknown]
  - Weight decreased [Unknown]
  - Electrolyte imbalance [Unknown]
  - Impaired healing [Unknown]

NARRATIVE: CASE EVENT DATE: 201609
